FAERS Safety Report 8697316 (Version 2)
Quarter: 2013Q1

REPORT INFORMATION
  Report Type: Report from Study
  Country: JP (occurrence: JP)
  Receive Date: 20120801
  Receipt Date: 20130312
  Transmission Date: 20140127
  Serious: Yes (Hospitalization)
  Sender: FDA-Public Use
  Company Number: JP-GLAXOSMITHKLINE-B0636759A

PATIENT
  Age: 48 Year
  Sex: Female
  Weight: 33 kg

DRUGS (12)
  1. TYKERB [Suspect]
     Indication: BREAST CANCER
     Route: 048
     Dates: start: 20100208, end: 20100221
  2. TYKERB [Suspect]
     Indication: BREAST CANCER
     Route: 048
     Dates: start: 20100301, end: 20100304
  3. XELODA [Suspect]
     Indication: PRODUCT USED FOR UNKNOWN INDICATION
     Route: 048
     Dates: start: 20100208, end: 20100221
  4. VALTREX [Concomitant]
     Indication: GENITAL HERPES
     Route: 048
     Dates: start: 20100303, end: 20100307
  5. ARASENA-A [Concomitant]
     Indication: GENITAL HERPES
     Route: 061
     Dates: start: 20100303
  6. ZINC OXIDE [Concomitant]
     Indication: GENITAL HERPES
     Route: 061
     Dates: start: 20100303
  7. OXYCONTIN [Concomitant]
     Indication: CANCER PAIN
     Route: 048
     Dates: start: 20100328
  8. OXINORM [Concomitant]
     Indication: CANCER PAIN
     Route: 048
     Dates: start: 20100329
  9. SENNOSIDE [Concomitant]
     Indication: CONSTIPATION PROPHYLAXIS
     Route: 048
     Dates: start: 20100401
  10. SOLANAX [Concomitant]
     Indication: PROPHYLAXIS
     Route: 048
     Dates: start: 20100315
  11. FAMOSTAGINE [Concomitant]
     Indication: GASTRITIS PROPHYLAXIS
     Route: 048
     Dates: start: 20100215
  12. LOXONIN [Concomitant]
     Indication: CANCER PAIN
     Route: 062
     Dates: start: 20100406

REACTIONS (7)
  - Bone marrow failure [Recovered/Resolved]
  - White blood cell count decreased [Recovered/Resolved]
  - Neutrophil count decreased [Unknown]
  - Nausea [Unknown]
  - Vomiting [Unknown]
  - Stomatitis [Recovered/Resolved]
  - Bone marrow failure [Recovered/Resolved]
